FAERS Safety Report 4345193-X (Version None)
Quarter: 2004Q2

REPORT INFORMATION
  Report Type: 
  Country: None (occurrence: None)
  Receive Date: 20040420
  Receipt Date: 20040407
  Transmission Date: 20050107
  Serious: Yes (Death, Other)
  Sender: FDA-Public Use
  Company Number: 2003125244

PATIENT
  Age: 14 Year
  Sex: Male
  Weight: 65 kg

DRUGS (4)
  1. VFEND [Suspect]
     Indication: ANTIFUNGAL PROPHYLAXIS
     Dosage: (BID), INTRAVENOUS
     Route: 042
     Dates: start: 20030510, end: 20030912
  2. ANTIFUNGALS (ANTIFUNGALS) [Concomitant]
  3. CASPOFUNGIN (CASPOFUNGIN) [Concomitant]
  4. ITRACONAZOLE [Concomitant]

REACTIONS (3)
  - ACUTE MYELOID LEUKAEMIA RECURRENT [None]
  - MUCORMYCOSIS [None]
  - PULMONARY HAEMORRHAGE [None]
